FAERS Safety Report 19248927 (Version 1)
Quarter: 2021Q2

REPORT INFORMATION
  Report Type: Spontaneous
  Country: US (occurrence: US)
  Receive Date: 20210512
  Receipt Date: 20210512
  Transmission Date: 20210717
  Serious: Yes (Other)
  Sender: FDA-Public Use
  Company Number: US-AMGEN-USASP2021069430

PATIENT
  Sex: Female

DRUGS (2)
  1. PROLIA [Suspect]
     Active Substance: DENOSUMAB
     Indication: FRACTURE
     Dosage: UNK
     Route: 065
  2. EVENITY [Suspect]
     Active Substance: ROMOSOZUMAB-AQQG
     Indication: FRACTURE
     Dosage: UNK
     Route: 065

REACTIONS (3)
  - Unevaluable event [Unknown]
  - Off label use [Unknown]
  - Spinal operation [Unknown]
